FAERS Safety Report 5308675-X (Version None)
Quarter: 2007Q2

REPORT INFORMATION
  Report Type: 
  Country: None (occurrence: None)
  Receive Date: 20070426
  Receipt Date: 20070420
  Transmission Date: 20071010
  Serious: Yes (Other)
  Sender: FDA-Public Use
  Company Number: US-GLAXOSMITHKLINE-A0645403A

PATIENT
  Age: 21 Year
  Sex: Female

DRUGS (5)
  1. LAMICTAL [Suspect]
     Indication: BIPOLAR II DISORDER
     Dosage: 200MG PER DAY
     Route: 048
     Dates: start: 20050520
  2. ORTHO-NOVUM [Suspect]
     Indication: CONTRACEPTION
     Route: 062
  3. WELLBUTRIN XL [Concomitant]
     Route: 048
  4. EFFEXOR XR [Concomitant]
     Dosage: 300MG PER DAY
     Route: 048
     Dates: start: 20050205
  5. AMBIEN [Concomitant]
     Dosage: 10MG AS REQUIRED

REACTIONS (4)
  - ABORTION INDUCED [None]
  - DRUG EXPOSURE DURING PREGNANCY [None]
  - DRUG INTERACTION [None]
  - UNINTENDED PREGNANCY [None]
